FAERS Safety Report 15947970 (Version 4)
Quarter: 2019Q2

REPORT INFORMATION
  Report Type: Spontaneous
  Country: US (occurrence: US)
  Receive Date: 20190211
  Receipt Date: 20190606
  Transmission Date: 20190711
  Serious: Yes (Hospitalization)
  Sender: FDA-Public Use
  Company Number: US-ACTELION-A-NJ2019-185307

PATIENT
  Age: 51 Year
  Sex: Female

DRUGS (1)
  1. OPSUMIT [Suspect]
     Active Substance: MACITENTAN
     Indication: PULMONARY ARTERIAL HYPERTENSION
     Dosage: 10 MG, QD
     Route: 048
     Dates: start: 20181219

REACTIONS (7)
  - Clostridium difficile colitis [Unknown]
  - Pulmonary hypertension [Unknown]
  - Fungal infection [Unknown]
  - Rhinorrhoea [Unknown]
  - Diarrhoea [Unknown]
  - Nasal congestion [Unknown]
  - Central venous catheterisation [Unknown]

NARRATIVE: CASE EVENT DATE: 20190227
